FAERS Safety Report 12202355 (Version 1)
Quarter: 2016Q1

REPORT INFORMATION
  Report Type: Report from Study
  Country: CA (occurrence: CA)
  Receive Date: 20160322
  Receipt Date: 20160322
  Transmission Date: 20160526
  Serious: Yes (Other)
  Sender: FDA-Public Use
  Company Number: PHHY2016CA037134

PATIENT
  Sex: Male

DRUGS (2)
  1. CELEBREX [Concomitant]
     Active Substance: CELECOXIB
     Indication: PRODUCT USED FOR UNKNOWN INDICATION
     Dosage: 200 MG, UNK
     Route: 065
  2. DIOVAN [Suspect]
     Active Substance: VALSARTAN
     Indication: HYPERTENSION
     Route: 048
     Dates: start: 2015

REACTIONS (8)
  - Burning sensation [Unknown]
  - Pruritus [Unknown]
  - Rash erythematous [Unknown]
  - Emotional distress [Unknown]
  - Skin plaque [Unknown]
  - Sunburn [Unknown]
  - Pain [Unknown]
  - Psoriasis [Unknown]
